FAERS Safety Report 10053409 (Version 2)
Quarter: 2014Q3

REPORT INFORMATION
  Report Type: Spontaneous
  Country: FR (occurrence: FR)
  Receive Date: 20140402
  Receipt Date: 20140801
  Transmission Date: 20150326
  Serious: Yes (Hospitalization)
  Sender: FDA-Public Use
  Company Number: FR-TEVA-470586ISR

PATIENT
  Age: 40 Year
  Sex: Female

DRUGS (1)
  1. LEELOO 0.1MG/0.02MG [Suspect]
     Active Substance: ETHINYL ESTRADIOL\LEVONORGESTREL
     Dosage: 1 DOSAGE FORMS DAILY; 1 DF: 0.02 MG ETHINYLESTRADIOL + 0.1 MG LEVONORGESTREL
     Route: 048
     Dates: start: 201212, end: 20131224

REACTIONS (4)
  - Vertebral artery dissection [Recovered/Resolved with Sequelae]
  - Headache [Recovering/Resolving]
  - Dizziness [Recovering/Resolving]
  - Neck pain [Recovering/Resolving]

NARRATIVE: CASE EVENT DATE: 201312
